FAERS Safety Report 8196181-7 (Version None)
Quarter: 2012Q1

REPORT INFORMATION
  Report Type: 
  Country: None (occurrence: None)
  Receive Date: 20120307
  Receipt Date: 20120307
  Transmission Date: 20120608
  Serious: No
  Sender: FDA-Public Use
  Company Number: None

PATIENT
  Age: 57 Year
  Sex: Male

DRUGS (1)
  1. ADVICOR [Suspect]
     Dates: start: 20080214, end: 20080408

REACTIONS (12)
  - LIVER INJURY [None]
  - CARDIAC MURMUR [None]
  - HEPATITIS ACUTE [None]
  - IATROGENIC INFECTION [None]
  - ORAL SURGERY [None]
  - INTERNATIONAL NORMALISED RATIO INCREASED [None]
  - PLASMACYTOSIS [None]
  - HEPATITIS C [None]
  - BONE GRAFT [None]
  - COAGULOPATHY [None]
  - PRODUCT CONTAMINATION MICROBIAL [None]
  - HEADACHE [None]
